FAERS Safety Report 5722965-8 (Version None)
Quarter: 2008Q2

REPORT INFORMATION
  Report Type: 
  Country: None (occurrence: None)
  Receive Date: 20080430
  Receipt Date: 20080428
  Transmission Date: 20081010
  Serious: Yes (Death, Hospitalization)
  Sender: FDA-Public Use
  Company Number: US-BRISTOL-MYERS SQUIBB COMPANY-14142442

PATIENT
  Age: 63 Year
  Sex: Male

DRUGS (15)
  1. DEFINITY [Suspect]
     Indication: ECHOCARDIOGRAM
     Dosage: 1 DOSAGE FORM = 4 CC OF 1 VIAL (RECONSTITUTED PER INSERT)
     Route: 042
     Dates: start: 20080405
  2. ALLOPURINOL [Concomitant]
  3. AMIODARONE HCL [Concomitant]
  4. ASPIRIN [Concomitant]
  5. CLOPIDOGREL BISULFATE [Concomitant]
  6. ESOMEPRAZOLE [Concomitant]
  7. EZETIMIBE [Concomitant]
  8. FOSPHENYTOIN SODIUM [Concomitant]
  9. GLIPIZIDE [Concomitant]
  10. INSULIN [Concomitant]
  11. METFORMIN HCL [Concomitant]
  12. NIACIN [Concomitant]
  13. SIMVASTATIN [Concomitant]
  14. VALSARTAN [Concomitant]
  15. PIPERACILLIN AND TAZOBACTAM [Concomitant]

REACTIONS (3)
  - CARDIAC ARREST [None]
  - DEATH [None]
  - INFUSION RELATED REACTION [None]
